FAERS Safety Report 4331273-1 (Version None)
Quarter: 2004Q1

REPORT INFORMATION
  Report Type: 
  Country: None (occurrence: None)
  Receive Date: 20040329
  Receipt Date: 20040317
  Transmission Date: 20041129
  Serious: Yes (Hospitalization)
  Sender: FDA-Public Use
  Company Number: HQWYE989719MAR04

PATIENT
  Age: 55 Year
  Sex: Female
  Weight: 41.77 kg

DRUGS (16)
  1. RAPAMUNE [Suspect]
     Indication: PROPHYLAXIS AGAINST TRANSPLANT REJECTION
     Dosage: 2 MG 1` X PER 1 DAY, ORAL
     Route: 048
     Dates: start: 20040127, end: 20040319
  2. ARANESP [Concomitant]
  3. VANCOMYCIN [Concomitant]
  4. VICODIN [Concomitant]
  5. AXID (NIZATIDINE SODIUM BICARBONATE (SODIUM BICARBONATE) [Concomitant]
  6. PREDNISONE [Concomitant]
  7. PROGRAF [Concomitant]
  8. LASIX [Concomitant]
  9. LABETAOLOL (LABETALOL) [Concomitant]
  10. CATAPRES [Concomitant]
  11. FERROUS SULFATE TAB [Concomitant]
  12. MYCELEX [Concomitant]
  13. VALCYTE [Concomitant]
  14. AMBIEN [Concomitant]
  15. MULTIVITAMIN ^LAPPE^ (VITAMINS NOS) [Concomitant]
  16. NEUTRA-PHOS (POTASSLUN PHOSPHTE DIBASIC/POTASSIUM PHOSPHATE MONOBASIC/ [Concomitant]

REACTIONS (18)
  - ABSCESS [None]
  - ANXIETY [None]
  - BACTERIAL INFECTION [None]
  - BLOOD GLUCOSE INCREASED [None]
  - BLOOD PRESSURE SYSTOLIC INCREASED [None]
  - BRAIN ABSCESS [None]
  - DIARRHOEA [None]
  - FACIAL PALSY [None]
  - HAEMATOCRIT DECREASED [None]
  - HAEMOGLOBIN DECREASED [None]
  - HYDROCEPHALUS [None]
  - INTERVERTEBRAL DISC DEGENERATION [None]
  - INTRAVENTRICULAR HAEMORRHAGE [None]
  - JUGULAR VEIN THROMBOSIS [None]
  - LEUKOENCEPHALOPATHY [None]
  - NYSTAGMUS [None]
  - OEDEMA PERIPHERAL [None]
  - TACHYCARDIA [None]
